FAERS Safety Report 9681755 (Version 1)
Quarter: 2013Q4

REPORT INFORMATION
  Report Type: Spontaneous
  Country: TR (occurrence: TR)
  Receive Date: 20131111
  Receipt Date: 20131111
  Transmission Date: 20140711
  Serious: Yes (Hospitalization)
  Sender: FDA-Public Use
  Company Number: TR-GLAXOSMITHKLINE-B0941275A

PATIENT
  Age: 30 Year
  Sex: Female

DRUGS (1)
  1. ZYBAN [Suspect]
     Indication: EX-TOBACCO USER
     Dosage: 150MG PER DAY
     Route: 048
     Dates: start: 20131018, end: 20131028

REACTIONS (2)
  - Swelling [Recovered/Resolved]
  - Erythema [Recovered/Resolved]
